FAERS Safety Report 15144053 (Version 1)
Quarter: 2018Q3

REPORT INFORMATION
  Report Type: Report from Study
  Country: US (occurrence: US)
  Receive Date: 20180713
  Receipt Date: 20180713
  Transmission Date: 20181010
  Serious: Yes (Hospitalization, Other)
  Sender: FDA-Public Use
  Company Number: US-BAYER-2018-042427

PATIENT
  Age: 50 Year
  Sex: Female
  Weight: 97.51 kg

DRUGS (4)
  1. ADEMPAS [Suspect]
     Active Substance: RIOCIGUAT
     Indication: PULMONARY ARTERIAL HYPERTENSION
     Dosage: UNK
     Dates: start: 20180129
  2. ADEMPAS [Suspect]
     Active Substance: RIOCIGUAT
     Indication: PULMONARY ARTERIAL HYPERTENSION
     Dosage: 1.5 MG, TID
     Route: 048
  3. ADEMPAS [Suspect]
     Active Substance: RIOCIGUAT
     Indication: PULMONARY ARTERIAL HYPERTENSION
     Dosage: 2 MG, TID
     Route: 048
  4. WARFARIN [Concomitant]
     Active Substance: WARFARIN
     Dosage: UNK

REACTIONS (8)
  - Tracheostomy [None]
  - Hospitalisation [Not Recovered/Not Resolved]
  - Lung operation [Unknown]
  - Pulmonary hypertension [None]
  - Cardiac operation [Unknown]
  - Oedema peripheral [Unknown]
  - Pulmonary thrombosis [None]
  - Bone debridement [Not Recovered/Not Resolved]

NARRATIVE: CASE EVENT DATE: 201803
